FAERS Safety Report 9647663 (Version 1)
Quarter: 2013Q4

REPORT INFORMATION
  Report Type: Spontaneous
  Country: RS (occurrence: RS)
  Receive Date: 20131028
  Receipt Date: 20131028
  Transmission Date: 20140711
  Serious: Yes (Other)
  Sender: FDA-Public Use
  Company Number: RS-BRISTOL-MYERS SQUIBB COMPANY-19650126

PATIENT
  Age: 70 Year
  Sex: Female

DRUGS (2)
  1. ERBITUX SOLN FOR INF 5MG/ML [Suspect]
     Indication: COLORECTAL CANCER METASTATIC
     Dosage: 1DF=5MG/ML
     Route: 042
  2. IRINOTECAN [Suspect]
     Indication: COLORECTAL CANCER METASTATIC
     Route: 042

REACTIONS (2)
  - Haematuria [Recovered/Resolved]
  - Epistaxis [Recovering/Resolving]
